FAERS Safety Report 5350569-8 (Version None)
Quarter: 2007Q2

REPORT INFORMATION
  Report Type: 
  Country: None (occurrence: None)
  Receive Date: 20070608
  Receipt Date: 20070608
  Transmission Date: 20071010
  Serious: Yes (Other)
  Sender: FDA-Public Use
  Company Number: GB-RB-006729-07

PATIENT
  Age: 38 Year
  Sex: Male

DRUGS (1)
  1. SUBUTEX [Suspect]
     Route: 065

REACTIONS (1)
  - CONVULSION [None]
